FAERS Safety Report 6909193-5 (Version None)
Quarter: 2010Q3

REPORT INFORMATION
  Report Type: 
  Country: None (occurrence: None)
  Receive Date: 20100805
  Receipt Date: 20100726
  Transmission Date: 20110219
  Serious: Yes (Death, Hospitalization)
  Sender: FDA-Public Use
  Company Number: US-BAXTER-2010BH018848

PATIENT
  Sex: Male

DRUGS (3)
  1. DIANEAL [Suspect]
     Indication: RENAL FAILURE CHRONIC
     Route: 033
     Dates: start: 20070101, end: 20100529
  2. DIANEAL [Suspect]
     Route: 033
     Dates: start: 20070101, end: 20100529
  3. DIANEAL [Suspect]
     Indication: RENAL FAILURE CHRONIC
     Route: 033
     Dates: start: 20070101, end: 20100529

REACTIONS (7)
  - AZOTAEMIA [None]
  - CACHEXIA [None]
  - FAILURE TO THRIVE [None]
  - FALL [None]
  - LOWER LIMB FRACTURE [None]
  - SEPSIS [None]
  - THERAPY CESSATION [None]
